FAERS Safety Report 18142634 (Version 1)
Quarter: 2020Q3

REPORT INFORMATION
  Report Type: Report from Study
  Country: US (occurrence: US)
  Receive Date: 20200813
  Receipt Date: 20200813
  Transmission Date: 20201103
  Serious: Yes (Life-Threatening, Hospitalization)
  Sender: FDA-Public Use
  Company Number: US-ROCHE-2657785

PATIENT
  Age: 61 Year
  Sex: Female
  Weight: 103 kg

DRUGS (4)
  1. BLINDED ATEZOLIZUMAB [Suspect]
     Active Substance: ATEZOLIZUMAB
     Indication: INVASIVE BREAST CARCINOMA
     Dosage: ON DAYS 1 AND 22??DATE OF LAST DOSE ADMINISTERED: 01/JUL/2020
     Route: 042
     Dates: start: 20200207
  2. TRASTUZUMAB. [Suspect]
     Active Substance: TRASTUZUMAB
     Indication: INVASIVE BREAST CARCINOMA
     Dosage: 8MG/KG IV C1D1 ONLY??DATE OF LAST DOSE ADMINISTERED: 01/JUL/2020
     Route: 042
     Dates: start: 20200207
  3. PACLITAXEL. [Suspect]
     Active Substance: PACLITAXEL
     Indication: INVASIVE BREAST CARCINOMA
     Dosage: ON DAYS 1, 8, 15, 22, 29, AND 36??DATE OF LAST DOSE ADIMINISTERED : 24/JUN/2020
     Route: 042
     Dates: start: 20200207
  4. PERTUZUMAB. [Suspect]
     Active Substance: PERTUZUMAB
     Indication: INVASIVE BREAST CARCINOMA
     Dosage: 420 MG IV ON DAYS 1 AND 22??DATE OF LAST DOSE ADMINISTERED: 01/JUL/2020
     Route: 042
     Dates: start: 20200207

REACTIONS (1)
  - Respiratory failure [Not Recovered/Not Resolved]

NARRATIVE: CASE EVENT DATE: 20200730
